FAERS Safety Report 20775460 (Version 2)
Quarter: 2022Q2

REPORT INFORMATION
  Report Type: Report from Study
  Country: MX (occurrence: MX)
  Receive Date: 20220502
  Receipt Date: 20220506
  Transmission Date: 20220721
  Serious: Yes (Other)
  Sender: FDA-Public Use
  Company Number: MX-NOVARTISPH-NVSC2022MX027837

PATIENT
  Age: 48 Year
  Sex: Female
  Weight: 68 kg

DRUGS (5)
  1. FEMARA [Suspect]
     Active Substance: LETROZOLE
     Indication: Metastases to lung
     Dosage: 1 DOSAGE FORM, QD(2.5MG)
     Route: 048
     Dates: start: 201912
  2. FEMARA [Suspect]
     Active Substance: LETROZOLE
     Indication: Metastases to spine
  3. FEMARA [Suspect]
     Active Substance: LETROZOLE
     Indication: Ganglioglioma
  4. IBRANCE [Concomitant]
     Active Substance: PALBOCICLIB
     Indication: Metastases to lung
     Dosage: 125 MG, QD
     Route: 048
     Dates: start: 2019
  5. IBRANCE [Concomitant]
     Active Substance: PALBOCICLIB
     Indication: Metastasis

REACTIONS (4)
  - Pneumonia [Unknown]
  - Muscle atrophy [Not Recovered/Not Resolved]
  - Weight increased [Recovering/Resolving]
  - Off label use [Not Recovered/Not Resolved]

NARRATIVE: CASE EVENT DATE: 20200401
